FAERS Safety Report 14345065 (Version 1)
Quarter: 2018Q1

REPORT INFORMATION
  Report Type: Spontaneous
  Country: US (occurrence: US)
  Receive Date: 20180103
  Receipt Date: 20180103
  Transmission Date: 20180509
  Serious: Yes (Other)
  Sender: FDA-Public Use
  Company Number: US-AMGEN-USASP2017192901

PATIENT
  Age: 60 Year
  Sex: Male
  Weight: 114.29 kg

DRUGS (1)
  1. ENBREL [Suspect]
     Active Substance: ETANERCEPT
     Indication: PSORIATIC ARTHROPATHY
     Dosage: 50 MG, QWK
     Route: 058
     Dates: start: 2015

REACTIONS (5)
  - Cerebrospinal fluid leakage [Unknown]
  - Intervertebral disc degeneration [Unknown]
  - Migraine [Unknown]
  - Deafness [Unknown]
  - Neck pain [Unknown]

NARRATIVE: CASE EVENT DATE: 201711
